FAERS Safety Report 4810191-6 (Version None)
Quarter: 2005Q4

REPORT INFORMATION
  Report Type: 
  Country: None (occurrence: None)
  Receive Date: 20051026
  Receipt Date: 20051020
  Transmission Date: 20060501
  Serious: Yes (Other)
  Sender: FDA-Public Use
  Company Number: US-MERCK-0510USA08472

PATIENT
  Sex: Female

DRUGS (2)
  1. VIOXX [Suspect]
     Indication: ARTHRITIS
     Route: 048
     Dates: start: 20021201, end: 20040901
  2. VIOXX [Suspect]
     Indication: PAIN
     Route: 048
     Dates: start: 20021201, end: 20040901

REACTIONS (1)
  - CEREBROVASCULAR ACCIDENT [None]
